FAERS Safety Report 6678821-4 (Version None)
Quarter: 2010Q2

REPORT INFORMATION
  Report Type: 
  Country: None (occurrence: None)
  Receive Date: 20100413
  Receipt Date: 20100406
  Transmission Date: 20101027
  Serious: Yes (Hospitalization)
  Sender: FDA-Public Use
  Company Number: FR-ASTRAZENECA-2009CG00357

PATIENT
  Age: 73 Year
  Sex: Female
  Weight: 54.1 kg

DRUGS (17)
  1. TENORMIN [Suspect]
     Route: 048
     Dates: end: 20081201
  2. TENORMIN [Suspect]
     Route: 048
     Dates: start: 20081201
  3. AMLOR [Suspect]
     Route: 065
     Dates: end: 20081201
  4. AMIODARONE HCL [Suspect]
     Route: 065
  5. LASIX [Suspect]
     Route: 048
     Dates: end: 20081201
  6. NEXIUM [Concomitant]
     Route: 065
  7. CERTICAN [Concomitant]
     Indication: RENAL TRANSPLANT
     Route: 048
     Dates: start: 20080228
  8. NEORAL [Concomitant]
     Route: 065
     Dates: start: 20080228
  9. OROCAL D3 [Concomitant]
     Route: 065
  10. IMOVANE [Concomitant]
     Route: 065
  11. LEVOTHYROX [Concomitant]
     Route: 065
  12. ARANESP [Concomitant]
     Route: 065
  13. AUGMENTIN '125' [Concomitant]
     Route: 065
  14. ARTELAC [Concomitant]
     Route: 065
  15. CLONAZEPAM [Concomitant]
     Route: 065
  16. TAHOR [Concomitant]
     Route: 065
  17. ZALDIAR [Concomitant]
     Route: 065

REACTIONS (2)
  - FALL [None]
  - ORTHOSTATIC HYPOTENSION [None]
